FAERS Safety Report 12892495 (Version 2)
Quarter: 2016Q4

REPORT INFORMATION
  Report Type: Spontaneous
  Country: DE (occurrence: DE)
  Receive Date: 20161028
  Receipt Date: 20161206
  Transmission Date: 20170207
  Serious: Yes (Death, Hospitalization, Other)
  Sender: FDA-Public Use
  Company Number: DE-009507513-1610DEU014075

PATIENT
  Age: 15 Year
  Sex: Female
  Weight: 60 kg

DRUGS (6)
  1. QUETIAPINE FUMARATE. [Suspect]
     Active Substance: QUETIAPINE FUMARATE
     Indication: DEPRESSION
     Dosage: THE PATIENT INGESTED 58 TABLETS, ONCE
     Route: 048
     Dates: start: 20160922, end: 20160922
  2. MIRTAZAPINE. [Suspect]
     Active Substance: MIRTAZAPINE
     Indication: DEPRESSION
     Dosage: UNK
     Route: 048
     Dates: start: 2016
  3. QUETIAPINE FUMARATE. [Suspect]
     Active Substance: QUETIAPINE FUMARATE
     Indication: BORDERLINE PERSONALITY DISORDER
     Dosage: UNK
     Route: 048
     Dates: start: 2016, end: 2016
  4. MIRTAZAPINE. [Suspect]
     Active Substance: MIRTAZAPINE
     Indication: SUICIDAL IDEATION
     Dosage: 23,5 TABLETS OF MIRTAZAPINE 30MG, ONCE
     Route: 048
     Dates: start: 20160922, end: 20160922
  5. QUETIAPINE FUMARATE. [Suspect]
     Active Substance: QUETIAPINE FUMARATE
     Indication: SUICIDAL IDEATION
  6. IBUPROFEN. [Suspect]
     Active Substance: IBUPROFEN
     Dosage: 5 G IN TOTAL, ONCE
     Dates: start: 20160922, end: 20160922

REACTIONS (5)
  - Overdose [Unknown]
  - Product use issue [Unknown]
  - Completed suicide [Fatal]
  - Acute respiratory distress syndrome [Fatal]
  - Toxicity to various agents [Fatal]

NARRATIVE: CASE EVENT DATE: 2016
